FAERS Safety Report 15812858 (Version 1)
Quarter: 2019Q1

REPORT INFORMATION
  Report Type: Spontaneous
  Country: JP (occurrence: JP)
  Receive Date: 20190111
  Receipt Date: 20190111
  Transmission Date: 20190417
  Serious: Yes (Other)
  Sender: FDA-Public Use
  Company Number: JP-BIOVERATIV-2018BV000837

PATIENT
  Age: 58 Year
  Sex: Male
  Weight: 65.7 kg

DRUGS (3)
  1. CALONAL [Concomitant]
     Active Substance: ACETAMINOPHEN
     Indication: OSTEOARTHRITIS
     Route: 065
     Dates: start: 20170808
  2. ELOCTATE [Suspect]
     Active Substance: (1-743)-(1638-2332)-BLOOD-COAGULATION FACTOR VIII (SYNTHETIC HUMAN) FUSION PROTEIN WITH IMMUNOGLOBULIN G1 (SYNTHETIC HUMAN FC DOMAIN FRAGMENT), (1444-6^),(1447-9^)-BIS(DISULFIDE) WITH IMMUNOGLOBULIN G1 (SYNTHETIC HUMAN FC DOMAIN FRAGMENT)
     Indication: FACTOR VIII DEFICIENCY
     Dosage: 50 IU/KG, BIW
     Route: 042
     Dates: start: 20170808, end: 20181127
  3. ANHIBA [Concomitant]
     Active Substance: ACETAMINOPHEN
     Indication: OSTEOARTHRITIS
     Route: 065
     Dates: start: 20170808

REACTIONS (1)
  - Factor VIII inhibition [Unknown]

NARRATIVE: CASE EVENT DATE: 20170829
